FAERS Safety Report 12485344 (Version 1)
Quarter: 2016Q2

REPORT INFORMATION
  Report Type: Spontaneous
  Country: BR (occurrence: BR)
  Receive Date: 20160621
  Receipt Date: 20160621
  Transmission Date: 20160815
  Serious: Yes (Other)
  Sender: FDA-Public Use
  Company Number: BR-PFIZER INC-2016305524

PATIENT
  Age: 36 Year
  Sex: Female
  Weight: 72 kg

DRUGS (7)
  1. SERTRALINE [Concomitant]
     Active Substance: SERTRALINE HYDROCHLORIDE
     Indication: BIPOLAR DISORDER
  2. BUP [Concomitant]
     Active Substance: BUPROPION HYDROCHLORIDE
     Indication: DEPRESSION
     Dosage: STRENGTH 150 MG 1 TABLET IN THE MORNING
     Route: 048
  3. BUP [Concomitant]
     Active Substance: BUPROPION HYDROCHLORIDE
     Indication: ANXIETY
  4. SERTRALINE [Concomitant]
     Active Substance: SERTRALINE HYDROCHLORIDE
     Indication: DEPRESSION
     Dosage: STRENGTH 100MG 1 TABLET AT NOON
     Route: 048
  5. AKINETON [Concomitant]
     Active Substance: BIPERIDEN HYDROCHLORIDE
     Dosage: STRENGTH 2 MG 2 TABLETS AT NOON
     Route: 048
  6. GEODON [Suspect]
     Active Substance: ZIPRASIDONE HYDROCHLORIDE\ZIPRASIDONE MESYLATE
     Indication: SCHIZOPHRENIA
     Dosage: STRENGTH 80MG 2 TABLETS/DAY
     Route: 048
     Dates: start: 2006
  7. RIVOTRIL [Concomitant]
     Active Substance: CLONAZEPAM
     Indication: SEDATIVE THERAPY
     Dosage: STRENGTH 2 MG
     Route: 048

REACTIONS (4)
  - Feeling of despair [Unknown]
  - Psychotic disorder [Unknown]
  - Intentional self-injury [Unknown]
  - Hypokinesia [Unknown]
